FAERS Safety Report 4821081-7 (Version None)
Quarter: 2005Q4

REPORT INFORMATION
  Report Type: 
  Country: None (occurrence: None)
  Receive Date: 20051104
  Receipt Date: 20050818
  Transmission Date: 20060501
  Serious: Yes (Hospitalization)
  Sender: FDA-Public Use
  Company Number: US-MERCK-0508USA03480

PATIENT
  Age: 61 Year
  Sex: Male
  Weight: 90 kg

DRUGS (7)
  1. VIOXX [Suspect]
     Indication: BACK PAIN
     Route: 048
     Dates: start: 20000101, end: 20021001
  2. VIOXX [Suspect]
     Indication: OSTEOARTHRITIS
     Route: 048
     Dates: start: 20000101, end: 20021001
  3. ASPIRIN [Concomitant]
     Indication: MYOCARDIAL INFARCTION
     Route: 065
     Dates: start: 20020601
  4. ASPIRIN [Concomitant]
     Route: 065
     Dates: start: 20020726
  5. ZOCOR [Concomitant]
     Indication: BLOOD CHOLESTEROL INCREASED
     Route: 048
     Dates: start: 20020726
  6. PREDNISONE [Concomitant]
     Indication: HERPES ZOSTER
     Route: 065
     Dates: start: 20021024
  7. PREDNISONE [Concomitant]
     Route: 065
     Dates: start: 20021024

REACTIONS (9)
  - ANXIETY [None]
  - BLOOD CHOLESTEROL INCREASED [None]
  - BRONCHITIS [None]
  - DYSPNOEA EXERTIONAL [None]
  - FATIGUE [None]
  - HERPES ZOSTER [None]
  - MYOCARDIAL INFARCTION [None]
  - PHARYNGITIS [None]
  - STRESS [None]
